FAERS Safety Report 6289519 (Version 18)
Quarter: 2012Q4

REPORT INFORMATION
  Report Type: 
  Country: US (occurrence: US)
  Receive Date: 20070417
  Receipt Date: 20121102
  Transmission Date: 20130627
  Serious: Yes (Hospitalization, Other)
  Sender: FDA-Public Use
  Company Number: PHEH2007US04432

PATIENT
  Age: 74 Year
  Sex: Female
  Weight: 70.3 kg

DRUGS (21)
  1. AREDIA [Suspect]
     Indication: BONE NEOPLASM MALIGNANT
     Route: 042
     Dates: end: 200601
  2. FEMARA [Concomitant]
     Dosage: 2.5 mg, UNK
  3. ASPIRIN ^BAYER^ [Concomitant]
  4. NORVASC [Concomitant]
  5. TOPROL XL [Concomitant]
  6. FLUOXETINE [Concomitant]
  7. LASIX [Concomitant]
  8. ARANESP [Concomitant]
  9. ALTACE [Concomitant]
  10. PREDNISONE [Concomitant]
     Dosage: 10 mg, QD
  11. INDERAL LA [Concomitant]
  12. PROZAC [Concomitant]
  13. ELAVIL [Concomitant]
  14. ZOCOR ^MSD^ [Concomitant]
  15. ZANTAC [Concomitant]
  16. TUSSIONEX [Concomitant]
  17. VALIUM [Concomitant]
  18. PAXIL [Concomitant]
  19. LEXAPRO [Concomitant]
  20. STEROIDS NOS [Concomitant]
     Route: 008
  21. TETRACYCLINE [Concomitant]

REACTIONS (99)
  - Haematuria [Unknown]
  - Pneumonia [Recovering/Resolving]
  - Aphthous stomatitis [Unknown]
  - Osteonecrosis of jaw [Unknown]
  - Exposed bone in jaw [Unknown]
  - Swelling [Unknown]
  - Purulent discharge [Unknown]
  - Deformity [Unknown]
  - Pain [Unknown]
  - Hypophagia [Unknown]
  - Discomfort [Unknown]
  - Oral disorder [Unknown]
  - Emotional distress [Unknown]
  - Anxiety [Unknown]
  - Anhedonia [Unknown]
  - Life expectancy shortened [Unknown]
  - Renal failure [Unknown]
  - Osteoarthritis [Unknown]
  - Scoliosis [Unknown]
  - Depression [Not Recovered/Not Resolved]
  - Angioedema [Unknown]
  - Hypertension [Not Recovered/Not Resolved]
  - Pulmonary mass [Unknown]
  - Gastrooesophageal reflux disease [Unknown]
  - Mitral valve prolapse [Unknown]
  - Arrhythmia [Unknown]
  - Neuropathy peripheral [Unknown]
  - Hypercholesterolaemia [Unknown]
  - Primary sequestrum [Unknown]
  - Blood cholesterol increased [Unknown]
  - Cataract [Unknown]
  - Vitreous floaters [Unknown]
  - Joint injury [Unknown]
  - Arthralgia [Unknown]
  - Musculoskeletal pain [Unknown]
  - Muscle strain [Unknown]
  - Bone density decreased [Unknown]
  - Spinal osteoarthritis [Unknown]
  - Exostosis [Unknown]
  - Spinal column stenosis [Unknown]
  - Scapula fracture [Unknown]
  - Rotator cuff syndrome [Unknown]
  - Lipids increased [Unknown]
  - Confusional state [Unknown]
  - Cyst [Unknown]
  - Dementia Alzheimer^s type [Unknown]
  - Metastases to bone [Unknown]
  - Intervertebral disc protrusion [Unknown]
  - Ileus paralytic [Unknown]
  - Abdominal pain [Unknown]
  - Hiatus hernia [Unknown]
  - Actinic keratosis [Unknown]
  - Fall [Unknown]
  - Impaired healing [Unknown]
  - Intracranial aneurysm [Unknown]
  - Restless legs syndrome [Unknown]
  - Aortic valve incompetence [Unknown]
  - Palpitations [Unknown]
  - Carotid artery disease [Unknown]
  - Ventricular extrasystoles [Unknown]
  - Cystic fibrosis pancreatic [Unknown]
  - Contusion [Unknown]
  - Ocular icterus [Unknown]
  - Adjustment disorder [Unknown]
  - Abdominal pain upper [Unknown]
  - Gastrointestinal pain [Unknown]
  - Dyspnoea [Unknown]
  - Constipation [Unknown]
  - Haemorrhagic diathesis [Unknown]
  - Increased tendency to bruise [Unknown]
  - Diplopia [Unknown]
  - Blood glucose increased [Unknown]
  - Blood urea increased [Unknown]
  - Nausea [Unknown]
  - Abdominal distension [Unknown]
  - Vomiting [Unknown]
  - Gastrointestinal tract adenoma [Unknown]
  - Osteonecrosis [Unknown]
  - Sciatica [Unknown]
  - Radiculitis [Unknown]
  - Osteosclerosis [Unknown]
  - Arthropathy [Unknown]
  - Osteochondrosis [Unknown]
  - Chondromalacia [Unknown]
  - Cardiac failure congestive [Unknown]
  - Left ventricular hypertrophy [Unknown]
  - Aortic bruit [Unknown]
  - Heart rate irregular [Unknown]
  - Heart rate increased [Unknown]
  - Anaemia [Unknown]
  - Diverticulum [Unknown]
  - Small intestinal obstruction [Unknown]
  - Cardiac murmur [Unknown]
  - Cardiac valve sclerosis [Unknown]
  - Dehydration [Unknown]
  - Aphagia [Unknown]
  - Dysphagia [Unknown]
  - Rhinitis allergic [Unknown]
  - Urinary tract infection [Unknown]
